FAERS Safety Report 6179698-6 (Version None)
Quarter: 2009Q2

REPORT INFORMATION
  Report Type: 
  Country: None (occurrence: None)
  Receive Date: 20090505
  Receipt Date: 20090430
  Transmission Date: 20091009
  Serious: Yes (Other)
  Sender: FDA-Public Use
  Company Number: ES-WYE-G03614809

PATIENT
  Sex: Male

DRUGS (10)
  1. TYGACIL [Suspect]
     Indication: LOCALISED INTRAABDOMINAL FLUID COLLECTION
     Dates: start: 20090129, end: 20090129
  2. TYGACIL [Suspect]
     Dates: start: 20090129, end: 20090210
  3. DIFLUCAN [Concomitant]
     Route: 048
     Dates: start: 20090206
  4. EMCONCOR [Concomitant]
     Route: 048
     Dates: start: 20080101
  5. ZOCOR [Concomitant]
     Route: 048
     Dates: start: 20081222
  6. PANTECTA [Concomitant]
     Route: 048
     Dates: start: 20090122
  7. TAVANIC [Concomitant]
     Route: 042
     Dates: start: 20090129
  8. URSOBIL [Concomitant]
     Route: 048
     Dates: start: 20081223
  9. ALBUMIN (HUMAN) [Concomitant]
     Route: 042
     Dates: start: 20090119
  10. METOCLOPRAMIDE [Concomitant]
     Route: 042
     Dates: start: 20090202

REACTIONS (1)
  - PANCYTOPENIA [None]
